FAERS Safety Report 4755460-3 (Version None)
Quarter: 2005Q3

REPORT INFORMATION
  Report Type: 
  Country: None (occurrence: None)
  Receive Date: 20050829
  Receipt Date: 20050816
  Transmission Date: 20060218
  Serious: Yes (Other)
  Sender: FDA-Public Use
  Company Number: 2005116755

PATIENT
  Age: 2 Month
  Sex: Male
  Weight: 5.4432 kg

DRUGS (2)
  1. INFANT'S PEDIACARE DECONGESTANT AND COUGH DROPS (PSEUDOEPHEDRINE, DEXT [Suspect]
     Indication: RHINORRHOEA
     Dosage: 1/8 TSP THREE TIMES, ORAL
     Route: 048
     Dates: start: 20050801, end: 20050801
  2. LANSOPRAZOLE [Concomitant]

REACTIONS (4)
  - FEAR [None]
  - RESPIRATORY DISTRESS [None]
  - THERAPEUTIC RESPONSE UNEXPECTED [None]
  - VOMITING [None]
